FAERS Safety Report 7653537-6 (Version None)
Quarter: 2011Q3

REPORT INFORMATION
  Report Type: 
  Country: None (occurrence: None)
  Receive Date: 20110803
  Receipt Date: 20110721
  Transmission Date: 20111222
  Serious: No
  Sender: FDA-Public Use
  Company Number: US-PFIZER INC-2011165936

PATIENT
  Sex: Female

DRUGS (1)
  1. ESTROPIPATE [Suspect]
     Dosage: 0.75 MG, UNK

REACTIONS (2)
  - WEIGHT INCREASED [None]
  - SWELLING [None]
